FAERS Safety Report 5692429-9 (Version None)
Quarter: 2008Q2

REPORT INFORMATION
  Report Type: 
  Country: None (occurrence: None)
  Receive Date: 20080402
  Receipt Date: 20080325
  Transmission Date: 20081010
  Serious: Yes (Other)
  Sender: FDA-Public Use
  Company Number: US-ABBOTT-08P-163-0444886-00

PATIENT

DRUGS (6)
  1. BIAXIN [Suspect]
     Indication: MULTIPLE MYELOMA
     Route: 048
  2. DEXAMETHASONE TAB [Suspect]
     Indication: MULTIPLE MYELOMA
  3. LENALIDOMIDE [Suspect]
     Indication: MULTIPLE MYELOMA
     Route: 048
  4. ACETYLSALICYLIC ACID SRT [Concomitant]
     Indication: PROPHYLAXIS
  5. OMEPRAZOLE [Concomitant]
     Indication: PROPHYLAXIS
  6. BACTRIM [Concomitant]
     Indication: PROPHYLAXIS
     Dosage: TWICE DAILY, 3 TIMES WEEKLY

REACTIONS (1)
  - SEPSIS [None]
